FAERS Safety Report 16093832 (Version 1)
Quarter: 2019Q1

REPORT INFORMATION
  Report Type: Other
  Country: DE (occurrence: DE)
  Receive Date: 20190320
  Receipt Date: 20190320
  Transmission Date: 20190418
  Serious: Yes (Congenital Anomaly, Other)
  Sender: FDA-Public Use
  Company Number: DE-MACLEODS PHARMACEUTICALS US LTD-MAC2019020511

PATIENT

DRUGS (2)
  1. ESCITALOPRAM [Suspect]
     Active Substance: ESCITALOPRAM OXALATE
     Indication: ANXIETY DISORDER
     Dosage: 15 MILLIGRAM, QD 0. - 38.2. GESTATIONAL WEEK, DURING 1 TRIMESTER
     Route: 064
     Dates: start: 20171127, end: 20180822
  2. LEVOTHYROXINE. [Concomitant]
     Active Substance: LEVOTHYROXINE
     Indication: PRODUCT USED FOR UNKNOWN INDICATION
     Dosage: 50 MICROGRAM, QD, 0. - 38.2. GESTATIONAL WEEK,  DURING 1 TRIMESTER
     Route: 064
     Dates: start: 20171127, end: 20180822

REACTIONS (4)
  - Atrial septal defect [Unknown]
  - Infantile apnoea [Recovered/Resolved]
  - Exposure during pregnancy [Unknown]
  - Retrognathia [Not Recovered/Not Resolved]

NARRATIVE: CASE EVENT DATE: 20180822
